FAERS Safety Report 5065682-2 (Version None)
Quarter: 2006Q3

REPORT INFORMATION
  Report Type: 
  Country: None (occurrence: None)
  Receive Date: 20060731
  Receipt Date: 20060725
  Transmission Date: 20061208
  Serious: Yes (Hospitalization)
  Sender: FDA-Public Use
  Company Number: AT-JNJFOC-20060704940

PATIENT
  Sex: Female
  Weight: 100 kg

DRUGS (11)
  1. DURAGESIC-100 [Suspect]
     Indication: PAIN
     Route: 062
     Dates: start: 20060530, end: 20060607
  2. OMEPRAZOLE [Concomitant]
     Indication: STOMACH DISCOMFORT
     Route: 065
  3. AMLODIPINE [Concomitant]
     Indication: HYPERTONIA
     Route: 065
  4. CITALOPRAM HYDROBROMIDE [Concomitant]
     Indication: DEPRESSION
     Route: 065
  5. FUROSEMIDE [Concomitant]
     Indication: HYPERTONIA
     Route: 065
  6. NOVALGIN [Concomitant]
     Indication: PAIN
     Route: 065
  7. CONCOR COR [Concomitant]
     Indication: CARDIAC DISORDER
     Route: 065
  8. FORLAX [Concomitant]
     Indication: CONSTIPATION
     Route: 065
  9. HALDOL [Concomitant]
     Indication: AGITATION
     Dosage: 3X3
     Route: 065
  10. AVANDAMET [Concomitant]
     Indication: DIABETES MELLITUS NON-INSULIN-DEPENDENT
     Route: 065
  11. INHIBACE PLUS [Concomitant]
     Indication: HYPERTONIA
     Route: 065

REACTIONS (3)
  - CYANOSIS [None]
  - LOBAR PNEUMONIA [None]
  - SOPOR [None]
